FAERS Safety Report 22053503 (Version 2)
Quarter: 2023Q1

REPORT INFORMATION
  Report Type: Report from Study
  Country: AR (occurrence: None)
  Receive Date: 20230302
  Receipt Date: 20230314
  Transmission Date: 20230418
  Serious: Yes (Hospitalization)
  Sender: FDA-Public Use
  Company Number: AR-ROCHE-3294181

PATIENT
  Age: 56 Year
  Sex: Female
  Weight: 88.9 kg

DRUGS (16)
  1. MOSUNETUZUMAB [Suspect]
     Active Substance: MOSUNETUZUMAB
     Indication: B-cell lymphoma
     Dosage: ON 22/FEB/2023, SHE RECEIVED THE MOST RECENT DOSE OF MOSUNETUZUMAB (45 MG) PRIOR TO AE AND SAE ONSET
     Route: 058
     Dates: start: 20220906
  2. POLATUZUMAB VEDOTIN [Suspect]
     Active Substance: POLATUZUMAB VEDOTIN
     Indication: B-cell lymphoma
     Dosage: ON 01/FEB/2023, SHE RECEIVED THE MOST RECENT DOSE OF POLATUZUMAB VEDOTIN (153 MG) PRIOR TO AE AND SA
     Route: 042
     Dates: start: 20220906
  3. TOCILIZUMAB [Suspect]
     Active Substance: TOCILIZUMAB
     Indication: B-cell lymphoma
     Dosage: AS NEEDED
     Route: 042
     Dates: start: 20220912
  4. LEVOTHYROXINE [Concomitant]
     Active Substance: LEVOTHYROXINE
     Indication: Hypothyroidism
     Dates: start: 2008
  5. ESCITALOPRAM [Concomitant]
     Active Substance: ESCITALOPRAM OXALATE
     Indication: Depression
     Dates: start: 20211201
  6. METOCLOPRAMIDE [Concomitant]
     Active Substance: METOCLOPRAMIDE
     Indication: Cytokine release syndrome
     Route: 030
     Dates: start: 20220911
  7. DORIXINA [Concomitant]
     Indication: Cytokine release syndrome
     Dosage: 1 AMPULE
     Route: 042
     Dates: start: 20220911
  8. ACETAMINOPHEN [Concomitant]
     Active Substance: ACETAMINOPHEN
     Indication: Cytokine release syndrome
     Route: 048
     Dates: start: 20220912
  9. NOREPINEPHRINE [Concomitant]
     Active Substance: NOREPINEPHRINE
     Indication: Cytokine release syndrome
     Route: 042
     Dates: start: 20220912
  10. NOREPINEPHRINE [Concomitant]
     Active Substance: NOREPINEPHRINE
     Indication: Hypotension
     Dosage: MEDICATION ONGOING : NO
     Route: 042
     Dates: start: 20230123, end: 20230224
  11. OMEPRAZOLE [Concomitant]
     Active Substance: OMEPRAZOLE
     Dates: start: 20220912
  12. DERMADEX (ARGENTINA) [Concomitant]
     Indication: Injection site reaction
     Route: 061
     Dates: start: 20220908
  13. ERYTHROPOIETIN [Concomitant]
     Active Substance: ERYTHROPOIETIN
     Indication: Anaemia
     Route: 058
     Dates: start: 20221116
  14. CLONAZEPAM [Concomitant]
     Active Substance: CLONAZEPAM
     Indication: Depression
     Dates: start: 20211201
  15. ALLOPURINOL [Concomitant]
     Active Substance: ALLOPURINOL
     Dates: start: 20220909
  16. HYDROCORTISONE [Concomitant]
     Active Substance: HYDROCORTISONE
     Indication: Hypotension
     Route: 042
     Dates: start: 20230223, end: 20230223

REACTIONS (1)
  - Urinary tract infection [Not Recovered/Not Resolved]

NARRATIVE: CASE EVENT DATE: 20230222
